FAERS Safety Report 21399176 (Version 2)
Quarter: 2023Q1

REPORT INFORMATION
  Report Type: Report from Study
  Country: US (occurrence: US)
  Receive Date: 20221001
  Receipt Date: 20230325
  Transmission Date: 20230418
  Serious: No
  Sender: FDA-Public Use
  Company Number: US-ABBVIE-22K-163-4444491-00

PATIENT
  Sex: Female

DRUGS (4)
  1. HUMIRA [Suspect]
     Active Substance: ADALIMUMAB
     Indication: Rheumatoid arthritis
     Route: 058
  2. HUMIRA [Suspect]
     Active Substance: ADALIMUMAB
     Route: 058
  3. HUMIRA [Suspect]
     Active Substance: ADALIMUMAB
     Route: 058
  4. METHOTREXATE [Suspect]
     Active Substance: METHOTREXATE
     Indication: Product used for unknown indication
     Route: 065

REACTIONS (19)
  - Hepatic cyst [Unknown]
  - Contusion [Recovered/Resolved]
  - Musculoskeletal stiffness [Not Recovered/Not Resolved]
  - Nasopharyngitis [Unknown]
  - Cervical spinal stenosis [Unknown]
  - Osteoporosis [Unknown]
  - Intervertebral disc protrusion [Unknown]
  - Nodule [Unknown]
  - Nausea [Unknown]
  - Alopecia [Unknown]
  - Pain [Not Recovered/Not Resolved]
  - Hypertension [Unknown]
  - Intervertebral disc degeneration [Unknown]
  - Neuropathy peripheral [Unknown]
  - Arthralgia [Unknown]
  - Fibromyalgia [Unknown]
  - Arthropathy [Unknown]
  - Peripheral swelling [Unknown]
  - Weight increased [Unknown]
